FAERS Safety Report 6551896-9 (Version None)
Quarter: 2010Q1

REPORT INFORMATION
  Report Type: 
  Country: None (occurrence: None)
  Receive Date: 20100126
  Receipt Date: 20100118
  Transmission Date: 20100710
  Serious: Yes (Disabling)
  Sender: FDA-Public Use
  Company Number: PT-PFIZER INC-2010006611

PATIENT
  Age: 57 Year
  Sex: Male
  Weight: 60 kg

DRUGS (2)
  1. ZARATOR [Suspect]
     Indication: DYSLIPIDAEMIA
     Dosage: 10 MG, UNK
     Route: 048
     Dates: start: 20090101, end: 20091101
  2. OMEPRAZOL [Concomitant]
     Indication: DUODENAL ULCER
     Dosage: UNK
     Route: 048
     Dates: start: 20090625

REACTIONS (1)
  - HEADACHE [None]
